FAERS Safety Report 14659885 (Version 7)
Quarter: 2018Q3

REPORT INFORMATION
  Report Type: Report from Study
  Country: US (occurrence: US)
  Receive Date: 20180320
  Receipt Date: 20180817
  Transmission Date: 20181010
  Serious: Yes (Hospitalization, Other)
  Sender: FDA-Public Use
  Company Number: US-PFIZER INC-2018075468

PATIENT
  Age: 82 Year
  Sex: Female
  Weight: 63.49 kg

DRUGS (5)
  1. IBRANCE [Suspect]
     Active Substance: PALBOCICLIB
     Dosage: 100 MG, ALTERNATE DAY (EVERY OTHER DAY, 21 DAYS ON/7 DAYS OFF)
     Dates: start: 20180531
  2. IBRANCE [Suspect]
     Active Substance: PALBOCICLIB
     Dosage: 125 MG, CYCLIC (DAILY, 3 WEEKS ON/ONE WEEK OFF; 21 DAYS ON, 7 DAYS OFF)
     Route: 048
     Dates: start: 20180217, end: 20180309
  3. IBRANCE [Suspect]
     Active Substance: PALBOCICLIB
     Dosage: 100 MG, ALTERNATE DAY
     Route: 048
     Dates: start: 20180217, end: 20180808
  4. IBRANCE [Suspect]
     Active Substance: PALBOCICLIB
     Indication: BREAST CANCER FEMALE
     Dosage: 125 MG, CYCLIC (DAILY, 21 DAYS ON/14 DAYS OFF)
     Route: 048
     Dates: start: 20180217, end: 20180309
  5. IBRANCE [Suspect]
     Active Substance: PALBOCICLIB
     Dosage: 100 MG, CYCLIC (EVERY OTHER DAY, 21 DAYS ON/7 DAYS OFF)
     Route: 048
     Dates: start: 20180531

REACTIONS (24)
  - Radiation injury [Unknown]
  - Upper respiratory tract infection [Recovered/Resolved]
  - Dehydration [Unknown]
  - Pleurisy [Unknown]
  - Neoplasm progression [Unknown]
  - Loss of consciousness [Unknown]
  - Syncope [Unknown]
  - Product use issue [Unknown]
  - Drug dose omission [Unknown]
  - Decreased appetite [Recovering/Resolving]
  - Constipation [Unknown]
  - Asthenia [Unknown]
  - Hypersomnia [Unknown]
  - Colitis [Unknown]
  - Diarrhoea [Unknown]
  - Rhinorrhoea [Recovered/Resolved]
  - Nausea [Unknown]
  - Cough [Not Recovered/Not Resolved]
  - Faeces soft [Unknown]
  - Early satiety [Unknown]
  - Abdominal tenderness [Unknown]
  - Eating disorder [Recovering/Resolving]
  - White blood cell count abnormal [Unknown]
  - Fatigue [Unknown]

NARRATIVE: CASE EVENT DATE: 2018
